FAERS Safety Report 9490614 (Version 2)
Quarter: 2013Q3

REPORT INFORMATION
  Report Type: Report from Study
  Country: AU (occurrence: AU)
  Receive Date: 20130830
  Receipt Date: 20130912
  Transmission Date: 20140515
  Serious: Yes (Other)
  Sender: FDA-Public Use
  Company Number: PHHY2013AU094427

PATIENT
  Age: 79 Year
  Sex: Female

DRUGS (3)
  1. ACLASTA [Suspect]
     Dosage: 5 MG, UNK
     Route: 042
     Dates: start: 20121009
  2. CARDIZEM CD [Concomitant]
     Indication: HYPERTENSION
     Dosage: 180 UKN, UNK
     Route: 048
  3. EZETROL [Concomitant]
     Indication: BLOOD CHOLESTEROL INCREASED
     Dosage: 10 UKN, UNK
     Route: 048

REACTIONS (2)
  - Syncope [Unknown]
  - Diarrhoea [Recovered/Resolved]
